FAERS Safety Report 8894757 (Version 1)
Quarter: 2012Q4

REPORT INFORMATION
  Report Type: 
  Country: FR (occurrence: FR)
  Receive Date: 20121108
  Receipt Date: 20121108
  Transmission Date: 20130627
  Serious: Yes (Hospitalization)
  Sender: FDA-Public Use
  Company Number: FR-BRISTOL-MYERS SQUIBB COMPANY-17087321

PATIENT
  Age: 82 Year
  Sex: Female

DRUGS (7)
  1. COUMADIN TABS 2 MG [Suspect]
     Dosage: Tablet
     Route: 048
  2. TEMERIT [Concomitant]
  3. TAREG [Concomitant]
  4. PARIET [Concomitant]
  5. ALLOPURINOL [Concomitant]
  6. ZOLPIDEM [Concomitant]
  7. DAFALGAN [Concomitant]

REACTIONS (2)
  - Transient ischaemic attack [Recovered/Resolved]
  - Cerebrovascular accident [None]
